FAERS Safety Report 23452164 (Version 1)
Quarter: 2024Q1

REPORT INFORMATION
  Report Type: Report from Study
  Country: ES (occurrence: ES)
  Receive Date: 20240129
  Receipt Date: 20240129
  Transmission Date: 20240410
  Serious: Yes (Hospitalization)
  Sender: FDA-Public Use
  Company Number: None

PATIENT
  Age: 39 Year
  Sex: Female

DRUGS (6)
  1. OMEPRAZOLE [Interacting]
     Active Substance: OMEPRAZOLE
     Indication: Epigastric discomfort
     Dosage: 20 MILLIGRAM, QD
     Route: 048
     Dates: start: 202009
  2. DESMOPRESSIN ACETATE [Interacting]
     Active Substance: DESMOPRESSIN ACETATE
     Indication: Hypopituitarism
     Dosage: 0.1 MILLIGRAM, BID (1 BOTTLE OF 5 ML)
     Route: 045
     Dates: start: 201706, end: 20230920
  3. KEPPRA [Concomitant]
     Active Substance: LEVETIRACETAM
     Indication: Epilepsy
     Dosage: 2 GRAM, QD (30 TABLETS)
     Route: 048
     Dates: start: 20190912
  4. VIMPAT [Concomitant]
     Active Substance: LACOSAMIDE
     Indication: Epilepsy
     Dosage: 200 MILLIGRAM, QD (56 TABLETS)
     Route: 048
     Dates: start: 202002
  5. LEVOTHYROXINE SODIUM [Concomitant]
     Active Substance: LEVOTHYROXINE SODIUM
     Indication: Hypopituitarism
     Dosage: 75 MICROGRAM, QD (100 TABLETS)
     Route: 048
     Dates: start: 201905
  6. HYDROCORTISONE [Concomitant]
     Active Substance: HYDROCORTISONE
     Indication: Hypopituitarism
     Dosage: 30 MILLIGRAM, QD (30 TABLETS)
     Route: 048
     Dates: start: 20160516

REACTIONS (2)
  - Hyponatraemia [Recovered/Resolved]
  - Drug interaction [Unknown]

NARRATIVE: CASE EVENT DATE: 20230920
